FAERS Safety Report 8489269 (Version 2)
Quarter: 2014Q2

REPORT INFORMATION
  Report Type: Spontaneous
  Country: US (occurrence: US)
  Receive Date: 20120402
  Receipt Date: 20140501
  Transmission Date: 20141212
  Serious: No
  Sender: FDA-Public Use
  Company Number: US-AMGEN-USASP2012015271

PATIENT
  Age: 73 Year
  Sex: Male

DRUGS (2)
  1. ENBREL [Suspect]
     Indication: RHEUMATOID ARTHRITIS
     Dosage: 50 MG, QWK
     Route: 065
     Dates: start: 20060120
  2. ENBREL [Suspect]

REACTIONS (8)
  - Skin disorder [Not Recovered/Not Resolved]
  - Adverse event [Unknown]
  - Feeling abnormal [Unknown]
  - Peripheral swelling [Unknown]
  - Drug administered at inappropriate site [Not Recovered/Not Resolved]
  - Injection site discomfort [Unknown]
  - Injection site pain [Not Recovered/Not Resolved]
  - Injection site haemorrhage [Recovered/Resolved]
